FAERS Safety Report 24450761 (Version 1)
Quarter: 2024Q4

REPORT INFORMATION
  Report Type: Spontaneous
  Country: US (occurrence: US)
  Receive Date: 20241017
  Receipt Date: 20241017
  Transmission Date: 20250115
  Serious: Yes (Death, Life-Threatening, Hospitalization)
  Sender: AMGEN
  Company Number: US-AMGEN-USASP2024203526

PATIENT
  Age: 57 Year
  Sex: Male

DRUGS (17)
  1. PREDNISONE [Suspect]
     Active Substance: PREDNISONE
     Indication: Glomerulonephritis rapidly progressive
     Dosage: 60 MILLIGRAM (FOR TWO WEEKS)
     Route: 048
  2. PREDNISONE [Suspect]
     Active Substance: PREDNISONE
     Dosage: UNK (FIVE-WEEK TAPER)
     Route: 048
  3. PREDNISONE [Suspect]
     Active Substance: PREDNISONE
     Dosage: 50 MILLIGRAM, QD
     Route: 048
  4. PREDNISONE [Suspect]
     Active Substance: PREDNISONE
     Dosage: 20 MILLIGRAM, QD
     Route: 048
  5. PREDNISONE [Suspect]
     Active Substance: PREDNISONE
     Dosage: UNK (TAPER OVER ONE WEEK 10 MG PO DAILY)
     Route: 048
  6. PREDNISONE [Suspect]
     Active Substance: PREDNISONE
     Dosage: 10 MILLIGRAM, QD
     Route: 048
  7. DOXYCYCLINE [Concomitant]
     Active Substance: DOXYCYCLINE
     Indication: Helicobacter test positive
     Dosage: 100 MILLIGRAM, Q12H
     Route: 040
  8. DOXYCYCLINE [Concomitant]
     Active Substance: DOXYCYCLINE
     Indication: Cat scratch disease
     Dosage: 100 MILLIGRAM, BID
     Route: 048
  9. METRONIDAZOLE [Concomitant]
     Active Substance: METRONIDAZOLE
     Indication: Helicobacter test positive
     Dosage: 500 MILLIGRAM, Q8H
     Route: 040
  10. METRONIDAZOLE [Concomitant]
     Active Substance: METRONIDAZOLE
     Indication: Cat scratch disease
  11. CEFTRIAXONE [Concomitant]
     Active Substance: CEFTRIAXONE
     Indication: Endocarditis
     Dosage: 2 GRAM
     Route: 040
  12. VANCOMYCIN [Concomitant]
     Active Substance: VANCOMYCIN
     Indication: Endocarditis
     Route: 040
  13. VANCOMYCIN [Concomitant]
     Active Substance: VANCOMYCIN
     Indication: Cat scratch disease
  14. RIFAMPIN [Concomitant]
     Active Substance: RIFAMPIN
     Indication: Cat scratch disease
     Dosage: 600 MILLIGRAM, QD
     Route: 048
  15. RIFAMPIN [Concomitant]
     Active Substance: RIFAMPIN
     Indication: Cat scratch disease
  16. PANTOPRAZOLE [Concomitant]
     Active Substance: PANTOPRAZOLE
     Indication: Helicobacter test positive
     Dosage: 40 MILLIGRAM, BID
     Route: 040
  17. PANTOPRAZOLE [Concomitant]
     Active Substance: PANTOPRAZOLE
     Dosage: 40 MILLIGRAM, QD
     Route: 048

REACTIONS (23)
  - Death [Fatal]
  - Endocarditis [Unknown]
  - Septic shock [Unknown]
  - Coma [Unknown]
  - Subdural haematoma [Unknown]
  - Dyspnoea [Unknown]
  - General physical health deterioration [Unknown]
  - Nutritional condition abnormal [Unknown]
  - Encephalopathy [Unknown]
  - Anaemia [Unknown]
  - Gastritis [Unknown]
  - Septic embolus [Unknown]
  - Cerebral haemorrhage [Unknown]
  - Unresponsive to stimuli [Unknown]
  - Haemodynamic instability [Unknown]
  - Pupillary reflex impaired [Unknown]
  - Cardiac valve vegetation [Unknown]
  - Areflexia [Unknown]
  - Pyrexia [Unknown]
  - Hypoxia [Unknown]
  - Tachycardia [Unknown]
  - Nausea [Unknown]
  - Off label use [Unknown]
